FAERS Safety Report 26034750 (Version 1)
Quarter: 2025Q4

REPORT INFORMATION
  Report Type: Spontaneous
  Country: US (occurrence: US)
  Receive Date: 20251112
  Receipt Date: 20251112
  Transmission Date: 20260118
  Serious: Yes (Hospitalization)
  Sender: MYLAN
  Company Number: US-MYLANLABS-2025M1095565

PATIENT
  Age: 60 Year
  Sex: Female

DRUGS (1)
  1. SUCRALFATE [Suspect]
     Active Substance: SUCRALFATE
     Indication: Product used for unknown indication
     Dosage: 1 GRAM, PERIPHERAL CATHETER

REACTIONS (2)
  - Superficial vein thrombosis [Recovering/Resolving]
  - Incorrect route of product administration [Recovering/Resolving]
